FAERS Safety Report 9630717 (Version 1)
Quarter: 2013Q4

REPORT INFORMATION
  Report Type: Spontaneous
  Country: US (occurrence: None)
  Receive Date: 20131015
  Receipt Date: 20131015
  Transmission Date: 20140711
  Serious: Yes (Hospitalization)
  Sender: FDA-Public Use
  Company Number: US-MACLEODS PHARMA-000156

PATIENT
  Age: 24 Year
  Sex: Female

DRUGS (4)
  1. AMLODIPINE (AMLODIPINE) [Suspect]
  2. TRAZODONE (TRAZODONE) [Suspect]
  3. SIMVASTATIN (SIMVASTATIN) [Suspect]
  4. SERTRALINE (SERTRALINE) [Concomitant]

REACTIONS (13)
  - Overdose [None]
  - Hypotension [None]
  - Nausea [None]
  - Vomiting [None]
  - Diarrhoea [None]
  - Metabolic acidosis [None]
  - Lung infiltration [None]
  - Leukocytosis [None]
  - Rhabdomyolysis [None]
  - Renal failure [None]
  - Renal tubular necrosis [None]
  - Blood glucose increased [None]
  - Haemodialysis [None]
